FAERS Safety Report 23403116 (Version 4)
Quarter: 2024Q4

REPORT INFORMATION
  Report Type: Report from Study
  Country: CA (occurrence: CA)
  Receive Date: 20240116
  Receipt Date: 20241120
  Transmission Date: 20250115
  Serious: Yes (Other)
  Sender: TAKEDA
  Company Number: CA-TAKEDA-2023TUS084053

PATIENT
  Age: 67 Year
  Sex: Female
  Weight: 61.3 kg

DRUGS (4)
  1. VEDOLIZUMAB [Suspect]
     Active Substance: VEDOLIZUMAB
     Indication: Colitis ulcerative
     Dosage: 300 MILLIGRAM
  2. VEDOLIZUMAB [Suspect]
     Active Substance: VEDOLIZUMAB
     Dosage: 300 MILLIGRAM, Q4WEEKS
     Dates: start: 20231122
  3. VEDOLIZUMAB [Suspect]
     Active Substance: VEDOLIZUMAB
     Dosage: 300 MILLIGRAM, Q4WEEKS
     Dates: start: 20231205
  4. REMICADE [Concomitant]
     Active Substance: INFLIXIMAB
     Dosage: UNK

REACTIONS (13)
  - Rectal haemorrhage [Unknown]
  - Haematochezia [Unknown]
  - Pneumonia [Unknown]
  - Frequent bowel movements [Unknown]
  - Asthenia [Unknown]
  - Alopecia [Unknown]
  - Pus in stool [Unknown]
  - Mucous stools [Unknown]
  - Diarrhoea [Unknown]
  - Off label use [Unknown]
  - Dizziness [Unknown]
  - Constipation [Unknown]
  - Nasopharyngitis [Unknown]

NARRATIVE: CASE EVENT DATE: 20230810
